FAERS Safety Report 9262359 (Version 5)
Quarter: 2013Q2

REPORT INFORMATION
  Report Type: Spontaneous
  Country: None (occurrence: None)
  Receive Date: 20121217
  Receipt Date: 20130424
  Transmission Date: 20140414
  Serious: Yes (Hospitalization)
  Sender: FDA-Public Use
  Company Number: 2012-1850

PATIENT
  Age: 46 Year
  Sex: Female
  Weight: 52 kg

DRUGS (6)
  1. DYSPORT [Suspect]
     Indication: SKIN WRINKLING
     Route: 030
     Dates: start: 20120313, end: 20120313
  2. DYSPORT [Suspect]
     Indication: SKIN WRINKLING
     Route: 030
     Dates: start: 20120313, end: 20120313
  3. DYSPORT [Suspect]
     Indication: SKIN WRINKLING
     Route: 030
     Dates: start: 20120313, end: 20120313
  4. DYSPORT [Suspect]
     Indication: OFF LABEL USE
     Route: 030
     Dates: start: 20120313, end: 20120313
  5. LISINOPRIL (LISINOPRIL) [Concomitant]
  6. BIRTH CONTROL NOS (CONTRACEPTIVES NOS) [Concomitant]

REACTIONS (7)
  - Swelling face [None]
  - Pruritus [None]
  - Eyelid oedema [None]
  - Lip swelling [None]
  - Product quality issue [None]
  - Eyelid ptosis [None]
  - Hypersensitivity [None]
